FAERS Safety Report 4951987-X (Version None)
Quarter: 2006Q1

REPORT INFORMATION
  Report Type: 
  Country: None (occurrence: None)
  Receive Date: 20060320
  Receipt Date: 20060307
  Transmission Date: 20060701
  Serious: Yes (Other)
  Sender: FDA-Public Use
  Company Number: 2006033734

PATIENT

DRUGS (3)
  1. UNASYN [Suspect]
     Indication: ILL-DEFINED DISORDER
     Dosage: INTRAVENOUS
     Route: 042
  2. CEFOTAX (CEFOTAXMINE SODIUM) [Concomitant]
  3. ACETAMINOPHEN [Concomitant]

REACTIONS (1)
  - RENAL FAILURE [None]
